FAERS Safety Report 16543605 (Version 2)
Quarter: 2019Q3

REPORT INFORMATION
  Report Type: Spontaneous
  Country: JP (occurrence: JP)
  Receive Date: 20190709
  Receipt Date: 20190821
  Transmission Date: 20191004
  Serious: Yes (Hospitalization, Other)
  Sender: FDA-Public Use
  Company Number: JP-ELI_LILLY_AND_COMPANY-JP201906011965

PATIENT
  Sex: Female
  Weight: 50.55 kg

DRUGS (9)
  1. HYDROCORTISONE ACETATE. [Concomitant]
     Active Substance: HYDROCORTISONE ACETATE
     Indication: SECONDARY ADRENOCORTICAL INSUFFICIENCY
     Dosage: UNK
     Route: 048
     Dates: start: 20190608
  2. SPIRAZON [Concomitant]
     Indication: DERMATITIS ALLERGIC
     Dosage: UNK
     Route: 061
  3. TRULICITY [Suspect]
     Active Substance: DULAGLUTIDE
     Indication: TYPE 2 DIABETES MELLITUS
     Dosage: 0.75 MG, WEEKLY (1/W)
     Route: 058
     Dates: start: 20190611, end: 20190611
  4. INSULIN GLARGINE [Concomitant]
     Active Substance: INSULIN GLARGINE
     Indication: TYPE 2 DIABETES MELLITUS
     Dosage: 4 INTERNATIONAL UNIT, EACH EVENING
     Route: 058
  5. CRESTOR OD [Concomitant]
     Active Substance: ROSUVASTATIN CALCIUM
     Indication: DYSLIPIDAEMIA
     Dosage: UNK
     Route: 048
     Dates: end: 20190628
  6. OLOPATADINE HYDROCHLORIDE OD [Concomitant]
     Indication: DERMATITIS ALLERGIC
     Dosage: UNK
     Route: 048
  7. HUMALOG [Concomitant]
     Active Substance: INSULIN LISPRO
     Indication: TYPE 2 DIABETES MELLITUS
     Dosage: 6 INTERNATIONAL UNIT, EACH MORNING
     Route: 058
  8. HUMALOG [Concomitant]
     Active Substance: INSULIN LISPRO
     Dosage: 4 INTERNATIONAL UNIT, EACH EVENING
     Route: 058
  9. MYALONE [CLOBETASOL PROPIONATE] [Concomitant]
     Indication: DERMATITIS ALLERGIC
     Dosage: UNK
     Route: 061

REACTIONS (5)
  - IIIrd nerve paralysis [Not Recovered/Not Resolved]
  - Fall [Recovering/Resolving]
  - Abdominal pain [Recovering/Resolving]
  - Subdural haematoma [Recovering/Resolving]
  - Syncope [Recovered/Resolved]

NARRATIVE: CASE EVENT DATE: 20190611
